FAERS Safety Report 6732869-X (Version None)
Quarter: 2010Q2

REPORT INFORMATION
  Report Type: 
  Country: None (occurrence: None)
  Receive Date: 20100517
  Receipt Date: 20100505
  Transmission Date: 20101027
  Serious: Yes (Other)
  Sender: FDA-Public Use
  Company Number: CAP10000169

PATIENT
  Age: 69 Year
  Sex: Female

DRUGS (2)
  1. ACTONEL [Suspect]
     Indication: OSTEOPOROSIS
     Dosage: 35 MG ONCE WEEKLY, ORAL
     Route: 048
     Dates: start: 20041201, end: 20090801
  2. LEVOTHYROXINE SODIUM [Concomitant]

REACTIONS (4)
  - ARTERIAL INSUFFICIENCY [None]
  - DEAFNESS UNILATERAL [None]
  - LYMPHOMA [None]
  - OSTEONECROSIS OF JAW [None]
